FAERS Safety Report 9717657 (Version 2)
Quarter: 2013Q4

REPORT INFORMATION
  Report Type: Spontaneous
  Country: US (occurrence: US)
  Receive Date: 20131127
  Receipt Date: 20131127
  Transmission Date: 20140711
  Serious: Yes (Disabling)
  Sender: FDA-Public Use
  Company Number: US-GE HEALTHCARE MEDICAL DIAGNOSTICS-OSCN-PR-1102S-0080

PATIENT
  Age: 53 Year
  Sex: Male

DRUGS (3)
  1. OMNISCAN [Suspect]
     Indication: RENAL TRANSPLANT
     Dates: start: 20050111, end: 20050111
  2. OMNISCAN [Suspect]
     Indication: MASS
     Dates: start: 20050314, end: 20050314
  3. OMNISCAN [Suspect]
     Dates: start: 20050324, end: 20050324

REACTIONS (1)
  - Nephrogenic systemic fibrosis [Not Recovered/Not Resolved]
